FAERS Safety Report 8292335-X (Version None)
Quarter: 2012Q2

REPORT INFORMATION
  Report Type: 
  Country: None (occurrence: None)
  Receive Date: 20120417
  Receipt Date: 20120410
  Transmission Date: 20120825
  Serious: Yes (Hospitalization)
  Sender: FDA-Public Use
  Company Number: US-B.I. PHARMACEUTICALS,INC./RIDGEFIELD-2012-BP-02455BP

PATIENT
  Sex: Male
  Weight: 100 kg

DRUGS (4)
  1. DOFETILIDE [Concomitant]
     Indication: ATRIAL FIBRILLATION
     Dosage: 500 MCG
     Dates: start: 20111212
  2. LISINOPRIL [Concomitant]
     Indication: HYPERTENSION
     Dates: start: 20110101
  3. PRADAXA [Suspect]
     Indication: CEREBROVASCULAR ACCIDENT PROPHYLAXIS
  4. PRADAXA [Suspect]
     Indication: ATRIAL FIBRILLATION
     Dosage: 300 MG
     Route: 048
     Dates: start: 20110624

REACTIONS (2)
  - CEREBRAL ARTERY EMBOLISM [None]
  - CARDIOVERSION [None]
